FAERS Safety Report 16863343 (Version 2)
Quarter: 2019Q4

REPORT INFORMATION
  Report Type: Spontaneous
  Country: US (occurrence: US)
  Receive Date: 20190927
  Receipt Date: 20191025
  Transmission Date: 20200122
  Serious: Yes (Other)
  Sender: FDA-Public Use
  Company Number: US-PFIZER INC-2019415249

PATIENT
  Age: 68 Year
  Sex: Female
  Weight: 87 kg

DRUGS (3)
  1. LYRICA [Suspect]
     Active Substance: PREGABALIN
     Indication: FIBROMYALGIA
     Dosage: 150 MG, 2X/DAY
     Route: 048
  2. LOSARTAN. [Concomitant]
     Active Substance: LOSARTAN
     Indication: HYPERTENSION
     Dosage: UNK
  3. PREGABALIN. [Suspect]
     Active Substance: PREGABALIN
     Dosage: UNK

REACTIONS (13)
  - Intervertebral disc compression [Unknown]
  - Burning sensation [Unknown]
  - Intervertebral disc protrusion [Unknown]
  - Insomnia [Unknown]
  - Laryngitis [Unknown]
  - Memory impairment [Unknown]
  - Paraesthesia [Unknown]
  - Pain [Unknown]
  - Feeling abnormal [Unknown]
  - Osteoarthritis [Unknown]
  - Oropharyngeal discomfort [Unknown]
  - Brain injury [Unknown]
  - Intervertebral disc degeneration [Unknown]
